FAERS Safety Report 7340692-0 (Version None)
Quarter: 2011Q1

REPORT INFORMATION
  Report Type: 
  Country: None (occurrence: None)
  Receive Date: 20110309
  Receipt Date: 20110228
  Transmission Date: 20110831
  Serious: No
  Sender: FDA-Public Use
  Company Number: FR-JNJFOC-20110206534

PATIENT
  Age: 24 Year
  Sex: Female

DRUGS (1)
  1. KETODERM [Suspect]
     Indication: PRURITUS
     Route: 061

REACTIONS (2)
  - ALOPECIA [None]
  - ALOPECIA AREATA [None]
